FAERS Safety Report 10543867 (Version 1)
Quarter: 2014Q4

REPORT INFORMATION
  Report Type: Spontaneous
  Country: US (occurrence: US)
  Receive Date: 20141027
  Receipt Date: 20141027
  Transmission Date: 20150529
  Serious: No
  Sender: FDA-Public Use
  Company Number: US-BAUSCH-BL-2014-004301

PATIENT
  Age: 64 Year
  Sex: Male
  Weight: 71.28 kg

DRUGS (6)
  1. ATIVAN [Suspect]
     Active Substance: LORAZEPAM
     Indication: PROCEDURAL PAIN
     Route: 048
     Dates: start: 1993
  2. PERPHENAZINE/AMITRIPTYLINE HYDROCHLORIDE [Concomitant]
     Indication: PRODUCT USED FOR UNKNOWN INDICATION
     Dates: start: 1992
  3. ATIVAN [Suspect]
     Active Substance: LORAZEPAM
     Dosage: ONE TABLET IN THE MORNING AND TWO TABLETS IN THE EVENING
     Route: 048
     Dates: start: 20140817
  4. ATIVAN [Suspect]
     Active Substance: LORAZEPAM
     Dosage: ONE TABLET IN THE MORNING AND TWO TABLETS IN THE EVENING
     Route: 048
     Dates: start: 201407, end: 2014
  5. ATIVAN [Suspect]
     Active Substance: LORAZEPAM
     Dosage: ONE TABLET IN THE MORNING AND TWO TABLETS IN THE EVENING
     Route: 048
     Dates: start: 2014, end: 2014
  6. LIPITOR [Concomitant]
     Active Substance: ATORVASTATIN CALCIUM
     Indication: PRODUCT USED FOR UNKNOWN INDICATION
     Dates: start: 1992

REACTIONS (4)
  - Tongue exfoliation [Recovered/Resolved]
  - Dysgeusia [Recovered/Resolved]
  - Dyspepsia [Unknown]
  - Chest pain [Unknown]

NARRATIVE: CASE EVENT DATE: 201407
